FAERS Safety Report 5359397-0 (Version None)
Quarter: 2007Q2

REPORT INFORMATION
  Report Type: 
  Country: None (occurrence: None)
  Receive Date: 20070615
  Receipt Date: 20070611
  Transmission Date: 20071010
  Serious: Yes (Life-Threatening, Hospitalization)
  Sender: FDA-Public Use
  Company Number: NO-ABBOTT-07P-122-0371113-00

PATIENT
  Sex: Female

DRUGS (8)
  1. HUMIRA [Suspect]
     Indication: RHEUMATOID ARTHRITIS
     Route: 058
     Dates: start: 20030901, end: 20040401
  2. PREDNISOLONE [Concomitant]
     Indication: RHEUMATOID ARTHRITIS
     Route: 048
  3. METHOTREXATE [Concomitant]
     Indication: RHEUMATOID ARTHRITIS
     Route: 048
     Dates: start: 20030101
  4. FOLIC ACID [Concomitant]
     Indication: RHEUMATOID ARTHRITIS
     Route: 048
  5. CALCIGRAN [Concomitant]
     Indication: OSTEOPOROSIS PROPHYLAXIS
     Route: 048
  6. METOPROLOL SUCCINATE [Concomitant]
     Indication: ANGINA PECTORIS
     Route: 048
  7. AMLODIPINE [Concomitant]
     Indication: ANGINA PECTORIS
     Route: 048
  8. ISOSORBIDE MONONITRATE [Concomitant]
     Indication: ANGINA PECTORIS
     Route: 048

REACTIONS (5)
  - DRUG INEFFECTIVE [None]
  - GASTROINTESTINAL STROMAL TUMOUR [None]
  - POOR PERIPHERAL CIRCULATION [None]
  - STOMACH DISCOMFORT [None]
  - URINARY TRACT INFECTION [None]
